FAERS Safety Report 7348474-0 (Version None)
Quarter: 2011Q1

REPORT INFORMATION
  Report Type: 
  Country: None (occurrence: None)
  Receive Date: 20110314
  Receipt Date: 20110302
  Transmission Date: 20110831
  Serious: Yes (Hospitalization, Other)
  Sender: FDA-Public Use
  Company Number: US-ASTRAZENECA-2011SE11871

PATIENT
  Age: 72 Year
  Sex: Female

DRUGS (1)
  1. CRESTOR [Suspect]
     Route: 048

REACTIONS (5)
  - ILL-DEFINED DISORDER [None]
  - KNEE OPERATION [None]
  - ARTHRITIS [None]
  - CATARACT [None]
  - BLADDER PROLAPSE [None]
